FAERS Safety Report 16865449 (Version 1)
Quarter: 2019Q3

REPORT INFORMATION
  Report Type: Spontaneous
  Country: NL (occurrence: NL)
  Receive Date: 20190930
  Receipt Date: 20190930
  Transmission Date: 20191005
  Serious: Yes (Hospitalization, Other)
  Sender: FDA-Public Use
  Company Number: NL-BRISTOL-MYERS SQUIBB COMPANY-BMS-2019-091760

PATIENT
  Age: 72 Year
  Sex: Male
  Weight: 82 kg

DRUGS (1)
  1. NIVOLUMAB [Suspect]
     Active Substance: NIVOLUMAB
     Indication: METASTATIC RENAL CELL CARCINOMA
     Dosage: UNK
     Route: 042
     Dates: start: 20190731

REACTIONS (5)
  - Electrocardiogram abnormal [Recovering/Resolving]
  - Myocarditis [Recovering/Resolving]
  - Transaminases increased [Recovering/Resolving]
  - Dyspnoea [Recovering/Resolving]
  - Pericarditis [Recovering/Resolving]

NARRATIVE: CASE EVENT DATE: 20190902
